FAERS Safety Report 4900657-2 (Version None)
Quarter: 2006Q1

REPORT INFORMATION
  Report Type: 
  Country: None (occurrence: None)
  Receive Date: 20060201
  Receipt Date: 20060112
  Transmission Date: 20060701
  Serious: Yes (Hospitalization)
  Sender: FDA-Public Use
  Company Number: US200601002160

PATIENT
  Sex: Male

DRUGS (2)
  1. HUMATROPE [Suspect]
     Indication: CYSTIC FIBROSIS
     Dosage: 2.4 MG, 5/W
     Dates: start: 20040401
  2. ENZYMES [Concomitant]

REACTIONS (1)
  - INFLUENZA [None]
